FAERS Safety Report 25993171 (Version 1)
Quarter: 2025Q4

REPORT INFORMATION
  Report Type: Spontaneous
  Country: US (occurrence: US)
  Receive Date: 20251104
  Receipt Date: 20251104
  Transmission Date: 20260117
  Serious: Yes (Other)
  Sender: SUPERNUS
  Company Number: US-SUP-SUP202510-004372

PATIENT

DRUGS (1)
  1. QELBREE [Suspect]
     Active Substance: VILOXAZINE HYDROCHLORIDE
     Indication: Product used for unknown indication
     Dosage: NOT PROVIDED

REACTIONS (4)
  - Syncope [Unknown]
  - Blood pressure decreased [Unknown]
  - Hallucination [Unknown]
  - Gait disturbance [Unknown]
